FAERS Safety Report 8200800-6 (Version None)
Quarter: 2012Q1

REPORT INFORMATION
  Report Type: 
  Country: None (occurrence: None)
  Receive Date: 20120312
  Receipt Date: 20120307
  Transmission Date: 20120608
  Serious: No
  Sender: FDA-Public Use
  Company Number: US-PFIZER INC-2012062576

PATIENT
  Sex: Female
  Weight: 55.329 kg

DRUGS (4)
  1. WARFARIN [Concomitant]
     Indication: ATRIAL FIBRILLATION
     Dosage: 5 MG, UNK (FOR 2 DAYS)
  2. CHANTIX [Suspect]
     Indication: SMOKING CESSATION THERAPY
     Dosage: 0.5 MG, DAILY
     Route: 048
     Dates: start: 20120303, end: 20120307
  3. WARFARIN [Concomitant]
     Dosage: 3 MG, UNK (FOR 5 DAYS)
  4. ATENOLOL [Concomitant]
     Indication: ATRIAL FIBRILLATION
     Dosage: 50 MG, DAILY

REACTIONS (1)
  - HEADACHE [None]
